FAERS Safety Report 13269690 (Version 3)
Quarter: 2017Q2

REPORT INFORMATION
  Report Type: Spontaneous
  Country: US (occurrence: US)
  Receive Date: 20170224
  Receipt Date: 20170609
  Transmission Date: 20170830
  Serious: Yes (Other)
  Sender: FDA-Public Use
  Company Number: US-009507513-1702USA004181

PATIENT
  Age: 90 Year
  Sex: Female
  Weight: 61.22 kg

DRUGS (10)
  1. BELSOMRA [Suspect]
     Active Substance: SUVOREXANT
     Dosage: ^CUT THE DOSE IN HALF^ TO 10MG DAILY
     Route: 048
     Dates: start: 201701, end: 201701
  2. DIOVAN [Concomitant]
     Active Substance: VALSARTAN
     Dosage: 160 MG DAILY
  3. HYDROCHLOROTHIAZIDE. [Concomitant]
     Active Substance: HYDROCHLOROTHIAZIDE
     Dosage: 12.5 (UNIT NOT PROVIDED)ONCE DAILY
  4. BELSOMRA [Suspect]
     Active Substance: SUVOREXANT
     Indication: INSOMNIA
     Dosage: 1 TABLET (20 MG), AT BEDTIME
     Route: 048
     Dates: start: 201701, end: 201701
  5. CARVEDILOL. [Concomitant]
     Active Substance: CARVEDILOL
     Dosage: 3.125 (UNIT NOT PROVIDED) TWICE DAILY
  6. VERAPAMIL [Concomitant]
     Active Substance: VERAPAMIL HYDROCHLORIDE
     Dosage: 120 MG AT BEDTIME
  7. LORATADINE 10 MG [Concomitant]
     Active Substance: LORATADINE
     Dosage: 10MG DAILY
  8. BELSOMRA [Suspect]
     Active Substance: SUVOREXANT
     Indication: INSOMNIA
     Dosage: 1 TABLET (15 MG), HS
     Route: 048
     Dates: start: 201701, end: 201701
  9. ULTRACET [Concomitant]
     Active Substance: ACETAMINOPHEN\TRAMADOL HYDROCHLORIDE
     Dosage: 325/37.5 (UNIT NOT PROVIDED) OCCASIONALLY
  10. VITAMIN D [Concomitant]
     Active Substance: CHOLECALCIFEROL
     Dosage: 50,000 UNITS ON SUNDAYS

REACTIONS (4)
  - Drug ineffective [Unknown]
  - Paraesthesia [Recovered/Resolved]
  - Wrong technique in product usage process [Unknown]
  - Agitation [Recovering/Resolving]

NARRATIVE: CASE EVENT DATE: 201701
